FAERS Safety Report 5678438-4 (Version None)
Quarter: 2008Q1

REPORT INFORMATION
  Report Type: 
  Country: None (occurrence: None)
  Receive Date: 20080320
  Receipt Date: 20080305
  Transmission Date: 20080703
  Serious: Yes (Death)
  Sender: FDA-Public Use
  Company Number: GXKR2008FR02388

PATIENT
  Age: 77 Year
  Sex: Female

DRUGS (7)
  1. DOXORUBICIN HCL [Suspect]
     Indication: B-CELL LYMPHOMA
     Dosage: 6 CYCLES,
  2. VINCRISTINE [Suspect]
     Indication: B-CELL LYMPHOMA
     Dosage: 6 CYCLES,
  3. PREDNISONE [Suspect]
     Indication: B-CELL LYMPHOMA
     Dosage: 6 CYCLES,
  4. CYCLOPHOSPHAMIDE [Suspect]
     Indication: B-CELL LYMPHOMA
     Dosage: 6 CYCLES,
  5. RITUXAN [Suspect]
     Indication: B-CELL LYMPHOMA
     Dosage: 2 CYCLES,
     Dates: end: 20050608
  6. VALACYCLOVIR [Concomitant]
  7. BACTRIM [Concomitant]

REACTIONS (5)
  - DIALYSIS [None]
  - HEPATIC ENCEPHALOPATHY [None]
  - HEPATIC FAILURE [None]
  - HEPATITIS B [None]
  - NO THERAPEUTIC RESPONSE [None]
